FAERS Safety Report 10209943 (Version 3)
Quarter: 2014Q2

REPORT INFORMATION
  Report Type: Spontaneous
  Country: GB (occurrence: GB)
  Receive Date: 20140602
  Receipt Date: 20140624
  Transmission Date: 20141212
  Serious: Yes (Hospitalization, Other)
  Sender: FDA-Public Use
  Company Number: PHFR2014GB003271

PATIENT
  Age: 30 Year
  Sex: Female

DRUGS (11)
  1. CLOZARIL [Suspect]
     Indication: SCHIZOAFFECTIVE DISORDER
     Dosage: 150 MG, DAILY
     Route: 048
     Dates: start: 20140314, end: 20140523
  2. OLANZAPINE [Concomitant]
     Indication: PSYCHOTIC DISORDER
     Dosage: 20 MG,DAILY
     Route: 048
     Dates: start: 20131212, end: 20140523
  3. OLANZAPINE [Concomitant]
     Indication: HALLUCINATION
  4. MIRTAZAPINE [Concomitant]
     Indication: DEPRESSION
     Dosage: 15 MG, DAILY
     Route: 048
     Dates: start: 201210
  5. DIAZEPAM [Concomitant]
     Indication: ANXIETY
     Dosage: 5 MG
     Route: 048
     Dates: start: 2011
  6. DIAZEPAM [Concomitant]
     Dosage: 20 MG, DAILY
     Route: 048
     Dates: start: 201210, end: 20140523
  7. VENLAFAXINE [Concomitant]
     Indication: DEPRESSION
     Dosage: 150 MG,
     Route: 048
     Dates: start: 2011
  8. VENLAFAXINE [Concomitant]
     Dosage: 150 MG, DAILY
     Route: 048
     Dates: start: 201210
  9. LAMOTRIGINE [Concomitant]
     Indication: AFFECTIVE DISORDER
     Dosage: 150 MG,
     Route: 048
     Dates: start: 20140214, end: 20140523
  10. LAMOTRIGINE [Concomitant]
     Dosage: 150 MG, DAILY
     Route: 048
     Dates: start: 20140612
  11. AMOXICLIN [Concomitant]
     Indication: INFECTION
     Dosage: UNK UKN, UNK
     Dates: start: 201403, end: 201404

REACTIONS (10)
  - Respiratory failure [Recovered/Resolved]
  - Loss of consciousness [Recovered/Resolved]
  - Asthma [Recovered/Resolved]
  - Dilatation ventricular [Recovered/Resolved]
  - Microcytic anaemia [Recovered/Resolved]
  - Pulmonary embolism [Recovered/Resolved]
  - Pneumonia [Recovered/Resolved]
  - Sinus tachycardia [Recovered/Resolved]
  - Hypertension [Recovered/Resolved]
  - Oedema peripheral [Recovered/Resolved]
